FAERS Safety Report 5907226-6 (Version None)
Quarter: 2008Q4

REPORT INFORMATION
  Report Type: 
  Country: None (occurrence: None)
  Receive Date: 20081003
  Receipt Date: 20080923
  Transmission Date: 20090506
  Serious: Yes (Other)
  Sender: FDA-Public Use
  Company Number: US-ROCHE-540538

PATIENT
  Sex: Male
  Weight: 72.6 kg

DRUGS (4)
  1. PEG-INTERFERON A-2A (RO 25-8310) [Suspect]
     Route: 065
     Dates: start: 20071011
  2. PEG-INTERFERON A-2A (RO 25-8310) [Suspect]
     Dosage: DISCONTINUED IN WEEK 42 OF THERAPY
     Route: 065
     Dates: end: 20080726
  3. RIBASPHERE [Suspect]
     Route: 065
     Dates: start: 20071011
  4. RIBASPHERE [Suspect]
     Dosage: DISCONTINUED IN WEEK 42 OF THERAPY
     Route: 065
     Dates: end: 20080726

REACTIONS (1)
  - MALIGNANT MELANOMA [None]
